FAERS Safety Report 13985788 (Version 1)
Quarter: 2017Q3

REPORT INFORMATION
  Report Type: Spontaneous
  Country: US (occurrence: None)
  Receive Date: 20170919
  Receipt Date: 20170919
  Transmission Date: 20171128
  Serious: Yes (Hospitalization)
  Sender: FDA-Public Use
  Company Number: None

PATIENT
  Age: 75 Year
  Sex: Female
  Weight: 67.1 kg

DRUGS (3)
  1. METFORMIN HYDROCHLORIDE. [Suspect]
     Active Substance: METFORMIN HYDROCHLORIDE
     Dates: end: 20170903
  2. TAXOL [Suspect]
     Active Substance: PACLITAXEL
     Dates: end: 20170830
  3. CARBOPLATIN. [Suspect]
     Active Substance: CARBOPLATIN
     Dates: end: 20170830

REACTIONS (5)
  - Abdominal pain lower [None]
  - Hypotension [None]
  - Diverticular perforation [None]
  - Nausea [None]
  - Large intestine perforation [None]

NARRATIVE: CASE EVENT DATE: 20170904
